FAERS Safety Report 4314011-8 (Version None)
Quarter: 2004Q1

REPORT INFORMATION
  Report Type: 
  Country: None (occurrence: None)
  Receive Date: 20040305
  Receipt Date: 20040217
  Transmission Date: 20041129
  Serious: Yes (Hospitalization)
  Sender: FDA-Public Use
  Company Number: 2004PK00360

PATIENT
  Age: 53 Year
  Sex: Female

DRUGS (3)
  1. SYMBICORT TURBUHALER ^ASTRAZENECA^ [Suspect]
     Indication: ASTHMA
     Dosage: 160/4.5 MCG BID
     Dates: start: 20030519, end: 20030602
  2. SYMBICORT [Suspect]
     Indication: ASTHMA
     Dosage: 160/4.5 MCG BID
     Dates: start: 20030603
  3. BRICANYL [Suspect]
     Indication: ASTHMA
     Dosage: 0.4 MG PRN IH
     Route: 045
     Dates: start: 20030603

REACTIONS (8)
  - BACK PAIN [None]
  - CHEST DISCOMFORT [None]
  - CHEST PAIN [None]
  - DYSPNOEA [None]
  - EXTRASYSTOLES [None]
  - HYPERTENSION [None]
  - PALPITATIONS [None]
  - VENTRICULAR HYPERTROPHY [None]
